FAERS Safety Report 16795824 (Version 1)
Quarter: 2019Q3

REPORT INFORMATION
  Report Type: Report from Study
  Country: CA (occurrence: CA)
  Receive Date: 20190911
  Receipt Date: 20190911
  Transmission Date: 20191005
  Serious: Yes (Other)
  Sender: FDA-Public Use
  Company Number: CA-TAKEDA-2019TUS051431

PATIENT
  Age: 23 Year
  Sex: Male

DRUGS (2)
  1. VEDOLIZUMAB [Suspect]
     Active Substance: VEDOLIZUMAB
     Indication: COLITIS ULCERATIVE
     Dosage: 300 MILLIGRAM
     Route: 042
     Dates: start: 20190323
  2. BUDESONIDE. [Concomitant]
     Active Substance: BUDESONIDE
     Dosage: UNK

REACTIONS (2)
  - Colitis ulcerative [Unknown]
  - Therapy non-responder [Unknown]
